FAERS Safety Report 5118218-1 (Version None)
Quarter: 2006Q4

REPORT INFORMATION
  Report Type: 
  Country: None (occurrence: None)
  Receive Date: 20061002
  Receipt Date: 20060605
  Transmission Date: 20070319
  Serious: Yes (Other)
  Sender: FDA-Public Use
  Company Number: US-BRISTOL-MYERS SQUIBB COMPANY-13401690

PATIENT
  Age: 6 Decade
  Sex: Female

DRUGS (1)
  1. ORENCIA [Suspect]
     Indication: RHEUMATOID ARTHRITIS
     Route: 042
     Dates: start: 20060529

REACTIONS (1)
  - PNEUMONIA [None]
